FAERS Safety Report 19190611 (Version 1)
Quarter: 2021Q2

REPORT INFORMATION
  Report Type: Spontaneous
  Country: JP (occurrence: JP)
  Receive Date: 20210428
  Receipt Date: 20210428
  Transmission Date: 20210717
  Serious: Yes (Other)
  Sender: FDA-Public Use
  Company Number: JP-EISAI MEDICAL RESEARCH-EC-2021-091535

PATIENT
  Age: 68 Year
  Sex: Female

DRUGS (6)
  1. TRASTUZUMAB. [Concomitant]
     Active Substance: TRASTUZUMAB
  2. PERTUZUMAB. [Concomitant]
     Active Substance: PERTUZUMAB
     Indication: CARCINOMA EX-PLEOMORPHIC ADENOMA
  3. ERIBULIN [Suspect]
     Active Substance: ERIBULIN
     Indication: CARCINOMA EX-PLEOMORPHIC ADENOMA
     Route: 041
  4. PERTUZUMAB. [Concomitant]
     Active Substance: PERTUZUMAB
  5. TRASTUZUMAB. [Concomitant]
     Active Substance: TRASTUZUMAB
     Indication: CARCINOMA EX-PLEOMORPHIC ADENOMA
  6. ERIBULIN [Suspect]
     Active Substance: ERIBULIN
     Route: 041

REACTIONS (2)
  - Electrocardiogram QT prolonged [Recovering/Resolving]
  - Neuropathy peripheral [Recovering/Resolving]
